FAERS Safety Report 7594140-6 (Version None)
Quarter: 2011Q3

REPORT INFORMATION
  Report Type: 
  Country: None (occurrence: None)
  Receive Date: 20110706
  Receipt Date: 20110627
  Transmission Date: 20111222
  Serious: Yes (Other)
  Sender: FDA-Public Use
  Company Number: JP-ASTRAZENECA-2011SE39199

PATIENT
  Age: 77 Year
  Sex: Female

DRUGS (1)
  1. XYLOCAINE W/ EPINEPHRINE [Suspect]
     Indication: LOCAL ANAESTHESIA
     Dosage: LIDOCAINE  EPINEPHRINE (1:5000)
     Route: 045

REACTIONS (2)
  - LARYNGEAL OEDEMA [None]
  - PHARYNGEAL OEDEMA [None]
